FAERS Safety Report 10661806 (Version 1)
Quarter: 2014Q4

REPORT INFORMATION
  Report Type: Spontaneous
  Country: US (occurrence: None)
  Receive Date: 20141216
  Receipt Date: 20141216
  Transmission Date: 20150529
  Serious: Yes (Other)
  Sender: FDA-Public Use
  Company Number: COL_18749_2014

PATIENT
  Age: 54 Year
  Sex: Female

DRUGS (3)
  1. COLGATE TOTAL FRESHMINT [Suspect]
     Active Substance: CETYLPYRIDINIUM CHLORIDE
     Indication: PRODUCT USED FOR UNKNOWN INDICATION
     Dosage: POURED SOME INTO THE CAP/TOTAL OF TWICE/ORAL
     Route: 048
     Dates: start: 20141204, end: 20141205
  2. ANTIHYPERTENSIVE [Concomitant]
     Active Substance: UNSPECIFIED INGREDIENT
  3. LIPID MODIFYING AGENTS [Concomitant]

REACTIONS (3)
  - Swollen tongue [None]
  - Lip swelling [None]
  - Mouth ulceration [None]

NARRATIVE: CASE EVENT DATE: 20141204
